FAERS Safety Report 8865585 (Version 1)
Quarter: 2012Q4

REPORT INFORMATION
  Report Type: 
  Country: US (occurrence: US)
  Receive Date: 20121024
  Receipt Date: 20121024
  Transmission Date: 20130627
  Serious: No
  Sender: FDA-Public Use
  Company Number: US-AMGEN-USASP2012003885

PATIENT
  Age: 55 Year
  Sex: Female
  Weight: 113.38 kg

DRUGS (1)
  1. ENBREL [Suspect]
     Indication: PSORIATIC ARTHROPATHY
     Dosage: 50 mg, qwk
     Route: 058

REACTIONS (5)
  - Nausea [Unknown]
  - Feeling hot [Unknown]
  - Pyrexia [Unknown]
  - Injection site erythema [Unknown]
  - Injection site bruising [Unknown]
